FAERS Safety Report 6015593-0 (Version None)
Quarter: 2008Q4

REPORT INFORMATION
  Report Type: 
  Country: None (occurrence: None)
  Receive Date: 20081222
  Receipt Date: 20081217
  Transmission Date: 20090506
  Serious: Yes (Other)
  Sender: FDA-Public Use
  Company Number: DE-PURDUE-DEU_2008_0004908

PATIENT
  Age: 43 Year
  Sex: Female

DRUGS (1)
  1. UNIPHYLLIN MINOR 200 MG, RETARDTABLETTEN [Suspect]
     Indication: ASTHMA
     Dosage: 200 MG, SINGLE
     Route: 048

REACTIONS (2)
  - HEART RATE INCREASED [None]
  - SWELLING FACE [None]
